FAERS Safety Report 9186403 (Version 1)
Quarter: 2013Q1

REPORT INFORMATION
  Report Type: Spontaneous
  Country: US (occurrence: US)
  Receive Date: 20130325
  Receipt Date: 20130325
  Transmission Date: 20140127
  Serious: Yes (Other)
  Sender: FDA-Public Use
  Company Number: US-JNJFOC-20130309530

PATIENT
  Sex: Male

DRUGS (2)
  1. REMICADE [Suspect]
     Indication: CROHN^S DISEASE
     Route: 042
     Dates: start: 200305, end: 201109
  2. REMICADE [Suspect]
     Indication: CROHN^S DISEASE
     Route: 042
     Dates: end: 201210

REACTIONS (10)
  - Idiopathic thrombocytopenic purpura [Unknown]
  - Pernicious anaemia [Unknown]
  - Platelet count decreased [Unknown]
  - Glaucoma [Unknown]
  - Osteoporosis [Unknown]
  - Intestinal obstruction [Unknown]
  - Drug specific antibody present [Unknown]
  - Bronchitis [Unknown]
  - Pneumonia [Unknown]
  - Malaise [Unknown]
